FAERS Safety Report 5415476-0 (Version None)
Quarter: 2007Q3

REPORT INFORMATION
  Report Type: 
  Country: None (occurrence: None)
  Receive Date: 20070815
  Receipt Date: 20070802
  Transmission Date: 20080115
  Serious: Yes (Other)
  Sender: FDA-Public Use
  Company Number: GB-ROCHE-510858

PATIENT
  Age: 67 Year
  Sex: Female
  Weight: 122 kg

DRUGS (8)
  1. XENICAL [Suspect]
     Indication: OBESITY
     Route: 048
     Dates: start: 20070730, end: 20070802
  2. VENTOLIN [Concomitant]
     Route: 055
  3. PULMICORT [Concomitant]
     Route: 055
  4. SEREVENT [Concomitant]
     Route: 055
  5. LOSEC [Concomitant]
     Route: 048
  6. GLICLAZIDE [Concomitant]
  7. INSULIN [Concomitant]
  8. CODEINE PHOSPHATE AND ACETAMINOPHEN [Concomitant]

REACTIONS (4)
  - ABDOMINAL DISTENSION [None]
  - CHEST DISCOMFORT [None]
  - DYSPNOEA [None]
  - NAUSEA [None]
